FAERS Safety Report 8974727 (Version 1)
Quarter: 2012Q4

REPORT INFORMATION
  Report Type: 
  Country: FR (occurrence: FR)
  Receive Date: 20121220
  Receipt Date: 20121220
  Transmission Date: 20130627
  Serious: Yes (Hospitalization)
  Sender: FDA-Public Use
  Company Number: FR-ELI_LILLY_AND_COMPANY-FR201212003575

PATIENT
  Age: 82 Year
  Sex: Female

DRUGS (6)
  1. FORSTEO [Suspect]
     Indication: OSTEOPOROSIS
     Dosage: 20 ug, qd
     Route: 058
     Dates: start: 20110601
  2. APROVEL [Concomitant]
     Dosage: UNK
  3. IMATINIB [Concomitant]
     Dosage: UNK
  4. LAMALINE [Concomitant]
     Dosage: UNK
  5. CORTANCYL [Concomitant]
     Dosage: UNK
  6. SPECIAFOLDINE [Concomitant]
     Dosage: UNK

REACTIONS (2)
  - Fall [Not Recovered/Not Resolved]
  - Pain [Not Recovered/Not Resolved]
